FAERS Safety Report 7519049-5 (Version None)
Quarter: 2011Q2

REPORT INFORMATION
  Report Type: 
  Country: None (occurrence: None)
  Receive Date: 20110523
  Receipt Date: 20110510
  Transmission Date: 20111010
  Serious: Yes (Hospitalization)
  Sender: FDA-Public Use
  Company Number: 2011MA005857

PATIENT
  Age: 70 Year
  Sex: Male

DRUGS (22)
  1. GABAPENTIN [Concomitant]
  2. SOLIFENACIN SUCCINATE [Concomitant]
  3. CITALOPRAM [Concomitant]
  4. ALLOPURINOL [Concomitant]
  5. ACETAMINOPHEN [Concomitant]
  6. TRIMETHOPRIM [Concomitant]
  7. TRAMADOL HCL [Concomitant]
  8. CO-CARELDOPA [Concomitant]
  9. FYBOGEL [Concomitant]
  10. STATIN NOS [Concomitant]
  11. QUETIAPINE [Concomitant]
  12. FENOFIBRATE [Concomitant]
  13. OMACOR [Concomitant]
  14. EZETIMIBE [Concomitant]
  15. RIVASTIGMINE [Concomitant]
  16. SENNA-MINT WAF [Concomitant]
  17. TRAMADOL HYDROCHLORIDE [Suspect]
     Indication: BACK PAIN
     Dosage: 100 MG, QID, PO
     Route: 048
     Dates: start: 20100610, end: 20100624
  18. LANSOPRAZOLE [Concomitant]
  19. LATANOPROST [Concomitant]
  20. CANDESARTAN CILEXETIL [Concomitant]
  21. BETNOVATE [Concomitant]
  22. MIRTAZAPINE [Concomitant]

REACTIONS (4)
  - HOMICIDE [None]
  - AGGRESSION [None]
  - HALLUCINATIONS, MIXED [None]
  - CONFUSIONAL STATE [None]
